FAERS Safety Report 14750019 (Version 2)
Quarter: 2018Q2

REPORT INFORMATION
  Report Type: Spontaneous
  Country: US (occurrence: US)
  Receive Date: 20180412
  Receipt Date: 20180519
  Transmission Date: 20180711
  Serious: No
  Sender: FDA-Public Use
  Company Number: US-JNJFOC-20180341255

PATIENT
  Age: 63 Year
  Sex: Male
  Weight: 74.84 kg

DRUGS (1)
  1. SIMPONI [Suspect]
     Active Substance: GOLIMUMAB
     Indication: PRODUCT USED FOR UNKNOWN INDICATION
     Route: 058
     Dates: start: 201709

REACTIONS (3)
  - Accidental exposure to product [Unknown]
  - Drug dose omission [Unknown]
  - Device failure [Unknown]

NARRATIVE: CASE EVENT DATE: 20180328
